FAERS Safety Report 9054219 (Version 2)
Quarter: 2013Q1

REPORT INFORMATION
  Report Type: Spontaneous
  Country: US (occurrence: US)
  Receive Date: 20130208
  Receipt Date: 20130227
  Transmission Date: 20140127
  Serious: No
  Sender: FDA-Public Use
  Company Number: US-PFIZER INC-2013048912

PATIENT
  Age: 45 Year
  Sex: Female
  Weight: 140 kg

DRUGS (1)
  1. TYGACIL [Suspect]
     Indication: GASTRIC INFECTION
     Dosage: 50 MG, 2X/DAY
     Dates: start: 20130111, end: 20130201

REACTIONS (3)
  - Hypersensitivity [Recovering/Resolving]
  - White blood cell count abnormal [Recovering/Resolving]
  - Thrombosis [Recovering/Resolving]
